FAERS Safety Report 8760007 (Version 5)
Quarter: 2013Q3

REPORT INFORMATION
  Report Type: Spontaneous
  Country: US (occurrence: US)
  Receive Date: 20120829
  Receipt Date: 20130706
  Transmission Date: 20140515
  Serious: Yes (Hospitalization, Other)
  Sender: FDA-Public Use
  Company Number: US-009507513-1203USA00772

PATIENT
  Sex: Female

DRUGS (5)
  1. FOSAMAX [Suspect]
     Indication: OSTEOPOROSIS
     Dosage: 70 MG, QW
     Route: 048
     Dates: start: 1996, end: 200305
  2. FOSAMAX [Suspect]
     Indication: OSTEOPENIA
  3. CALCIUM (UNSPECIFIED) [Concomitant]
  4. VITAMIN D (UNSPECIFIED) [Concomitant]
  5. ACTONEL [Suspect]
     Indication: OSTEOPENIA
     Dosage: 35 MG, QW
     Route: 048
     Dates: start: 200402

REACTIONS (23)
  - Femur fracture [Recovering/Resolving]
  - Fall [Unknown]
  - Intramedullary rod insertion [Unknown]
  - Postoperative fever [Recovering/Resolving]
  - Anaemia postoperative [Unknown]
  - Knee arthroplasty [Unknown]
  - Knee arthroplasty [Unknown]
  - Musculoskeletal pain [Unknown]
  - Back pain [Unknown]
  - Pathological fracture [Unknown]
  - Depression [Unknown]
  - Low turnover osteopathy [Unknown]
  - Vulvitis [Unknown]
  - Atrophic vulvovaginitis [Unknown]
  - Hand fracture [Unknown]
  - Large intestine polyp [Unknown]
  - Drug intolerance [Unknown]
  - Spinal compression fracture [Unknown]
  - Haemarthrosis [Unknown]
  - Rotator cuff syndrome [Unknown]
  - Joint adhesion [Unknown]
  - Arthrotomy [Unknown]
  - Gastritis [Unknown]
